FAERS Safety Report 8181607 (Version 3)
Quarter: 2013Q4

REPORT INFORMATION
  Report Type: Spontaneous
  Country: FR (occurrence: FR)
  Receive Date: 20111014
  Receipt Date: 20131108
  Transmission Date: 20140711
  Serious: Yes (Life-Threatening, Hospitalization)
  Sender: FDA-Public Use
  Company Number: FR-GLAXOSMITHKLINE-B0753470A

PATIENT
  Age: 65 Year
  Sex: Male

DRUGS (1)
  1. ARIXTRA [Suspect]
     Indication: PRODUCT USED FOR UNKNOWN INDICATION
     Dosage: 2.5MG PER DAY
     Route: 058
     Dates: start: 20110725, end: 20110727

REACTIONS (3)
  - Thrombocytopenia [Recovered/Resolved]
  - Thrombophlebitis [Recovered/Resolved]
  - Hypersensitivity [Unknown]
